FAERS Safety Report 18886820 (Version 2)
Quarter: 2021Q1

REPORT INFORMATION
  Report Type: Report from Study
  Country: KR (occurrence: KR)
  Receive Date: 20210212
  Receipt Date: 20210315
  Transmission Date: 20210420
  Serious: Yes (Other)
  Sender: FDA-Public Use
  Company Number: NVSC2021KR028451

PATIENT
  Sex: Female

DRUGS (6)
  1. CITOPCIN [Concomitant]
     Indication: PROPHYLAXIS
     Dosage: 1000 MG
     Route: 048
     Dates: start: 20201106, end: 20201125
  2. NORVASC [Concomitant]
     Active Substance: AMLODIPINE BESYLATE
     Indication: HYPERTENSION
     Dosage: 5 MG (ODT)
     Route: 048
     Dates: start: 2013
  3. COMBIFLEX LIPID CENTRAL [Concomitant]
     Indication: PROPHYLAXIS
     Dosage: 1000 ML
     Route: 042
     Dates: start: 20201112, end: 20201115
  4. RYDAPT [Suspect]
     Active Substance: MIDOSTAURIN
     Indication: ACUTE MYELOID LEUKAEMIA
     Dosage: 50 MG, BID
     Route: 048
     Dates: start: 20201113
  5. BEAROBAN [Concomitant]
     Indication: PYODERMA GANGRENOSUM
     Dosage: 1 G (DERMA)
     Route: 065
     Dates: start: 20201126, end: 20201208
  6. SYNTHYROXINE [Concomitant]
     Active Substance: LEVOTHYROXINE SODIUM
     Indication: THYROID CANCER
     Dosage: 150 UG
     Route: 048
     Dates: start: 2012

REACTIONS (1)
  - Neuropathy peripheral [Recovering/Resolving]

NARRATIVE: CASE EVENT DATE: 20201118
